FAERS Safety Report 18404454 (Version 1)
Quarter: 2020Q4

REPORT INFORMATION
  Report Type: Spontaneous
  Country: US (occurrence: US)
  Receive Date: 20201020
  Receipt Date: 20201020
  Transmission Date: 20210114
  Serious: Yes (Hospitalization)
  Sender: FDA-Public Use
  Company Number: None

PATIENT
  Age: 77 Year
  Sex: Male
  Weight: 103 kg

DRUGS (1)
  1. XELODA [Suspect]
     Active Substance: CAPECITABINE
     Dates: end: 20201005

REACTIONS (4)
  - Therapy interrupted [None]
  - Hip fracture [None]
  - Pain management [None]
  - Fall [None]

NARRATIVE: CASE EVENT DATE: 20201006
